FAERS Safety Report 26021453 (Version 1)
Quarter: 2025Q4

REPORT INFORMATION
  Report Type: Spontaneous
  Country: US (occurrence: None)
  Receive Date: 20251109
  Receipt Date: 20251109
  Transmission Date: 20260118
  Serious: Yes (Hospitalization)
  Sender: FDA-CTU
  Company Number: None

PATIENT
  Sex: Female

DRUGS (5)
  1. OPSUMIT [Suspect]
     Active Substance: MACITENTAN
     Indication: Pulmonary arterial hypertension
     Dosage: 10 MG DAILY ORAL?
     Route: 048
     Dates: start: 20250812
  2. REMODULIN [Suspect]
     Active Substance: TREPROSTINIL
  3. SILDENAFIL CITRATE [Concomitant]
     Active Substance: SILDENAFIL CITRATE
  4. WINREVAIR [Concomitant]
     Active Substance: SOTATERCEPT-CSRK
  5. MYCOPHENOLATE MOFETIL [Concomitant]
     Active Substance: MYCOPHENOLATE MOFETIL

REACTIONS (6)
  - Dyspnoea [None]
  - Pneumonia [None]
  - Pulmonary oedema [None]
  - Pulmonary arterial hypertension [None]
  - Disease complication [None]
  - Therapy interrupted [None]
